FAERS Safety Report 4569504-5 (Version None)
Quarter: 2005Q1

REPORT INFORMATION
  Report Type: 
  Country: None (occurrence: None)
  Receive Date: 20050201
  Receipt Date: 20050120
  Transmission Date: 20050727
  Serious: Yes (Other)
  Sender: FDA-Public Use
  Company Number: 2005019765

PATIENT
  Sex: Female

DRUGS (1)
  1. LINEZOLID TABLET (LINEZOLID) [Suspect]
     Indication: OSTEITIS
     Dosage: 1200 MG (600 MG, TWICE DAILY), ORAL
     Route: 048

REACTIONS (2)
  - BONE MARROW DISORDER [None]
  - PARAESTHESIA [None]
